FAERS Safety Report 9057896 (Version 5)
Quarter: 2013Q3

REPORT INFORMATION
  Report Type: Report from Study
  Country: US (occurrence: US)
  Receive Date: 20130204
  Receipt Date: 20130802
  Transmission Date: 20140515
  Serious: Yes (Death, Other)
  Sender: FDA-Public Use
  Company Number: US-BAYER-2012-107390

PATIENT
  Age: 57 Year
  Sex: Male
  Weight: 58.5 kg

DRUGS (18)
  1. REGORAFENIB [Suspect]
     Indication: COLORECTAL CANCER METASTATIC
     Dosage: DAILY DOSE 160 MG
     Route: 048
     Dates: start: 20120719, end: 20121003
  2. LABETALOL HCL [Concomitant]
     Indication: HYPERTENSION
     Dosage: DAILY DOSE 400 MG
     Route: 048
     Dates: start: 201201
  3. CLEOCIN [Concomitant]
     Indication: RASH
     Dosage: DAILY DOSE 600 MG
     Route: 048
     Dates: start: 201006
  4. CLEOCIN [Concomitant]
     Indication: RASH
     Dosage: DAILY DOSE 1200 MG
     Route: 048
     Dates: start: 20120806, end: 20121013
  5. IRON [Concomitant]
     Indication: SUPPLEMENTATION THERAPY
     Dosage: 1 TAB
     Route: 048
     Dates: start: 2010
  6. OMEPRAZOLE [Concomitant]
     Indication: DYSPEPSIA
     Dosage: DAILY DOSE 40 MG
     Route: 048
     Dates: start: 20120810
  7. OMEPRAZOLE [Concomitant]
     Indication: DYSPEPSIA
     Dosage: DAILY DOSE 80 MG
     Route: 048
     Dates: start: 20120901, end: 20121013
  8. SODIUM BICARBONATE [Concomitant]
     Indication: DYSPEPSIA
     Dosage: DAILY DOSE 650 MG
     Route: 048
     Dates: start: 20120917
  9. SODIUM BICARBONATE [Concomitant]
     Indication: DYSPEPSIA
     Dosage: DAILY DOSE 1300 MG
     Route: 048
     Dates: start: 20120620, end: 20121013
  10. LORTAB [HYDROCODONE BITARTRATE,PARACETAMOL] [Concomitant]
     Indication: ABDOMINAL PAIN
     Dosage: 2 TABS
     Route: 050
     Dates: start: 20120710
  11. LORTAB [HYDROCODONE BITARTRATE,PARACETAMOL] [Concomitant]
     Indication: ABDOMINAL PAIN
     Dosage: 2 TABS
     Route: 048
     Dates: start: 20120828, end: 20121013
  12. MEGACE [Concomitant]
     Indication: DECREASED APPETITE
     Dosage: DAILY DOSE 800 MG
     Route: 048
     Dates: start: 20120904
  13. CIPRO [Concomitant]
     Indication: URINARY TRACT INFECTION
     Dosage: DAILY DOSE 500 MG
     Route: 048
     Dates: start: 20120924, end: 20121001
  14. RESTORIL [Concomitant]
     Indication: INSOMNIA
     Dosage: DAILY DOSE 30 MG
     Route: 048
     Dates: start: 20121005
  15. RESTORIL [Concomitant]
     Indication: INSOMNIA
     Dosage: DAILY DOSE 15 MG
     Route: 048
     Dates: start: 20120822, end: 20121013
  16. ZOFRAN [Concomitant]
     Indication: NAUSEA
     Dosage: 16 MG, UNK
     Route: 048
     Dates: start: 20120822, end: 20121013
  17. TRAMADOL [Concomitant]
     Indication: ABDOMINAL PAIN
     Dosage: 50 MG, UNK
     Route: 048
     Dates: start: 20120828, end: 20121013
  18. DICYCLOMINE [Concomitant]
     Indication: ABDOMINAL PAIN
     Dosage: DAILY DOSE 10 MG
     Route: 048
     Dates: start: 20120713, end: 20120810

REACTIONS (3)
  - General physical health deterioration [Fatal]
  - Squamous cell carcinoma of skin [Not Recovered/Not Resolved]
  - Basal cell carcinoma [Not Recovered/Not Resolved]
